FAERS Safety Report 8112171-4 (Version None)
Quarter: 2012Q1

REPORT INFORMATION
  Report Type: 
  Country: None (occurrence: None)
  Receive Date: 20120203
  Receipt Date: 20120125
  Transmission Date: 20120608
  Serious: Yes (Other)
  Sender: FDA-Public Use
  Company Number: CA-AMGEN-CANSP2011058359

PATIENT
  Age: 62 Year
  Sex: Female

DRUGS (6)
  1. ENBREL [Suspect]
     Indication: RHEUMATOID ARTHRITIS
     Dosage: 50 MG, QWK
     Dates: start: 20111013, end: 20111101
  2. OXAPROZIN [Concomitant]
     Dosage: UNK
  3. PLAQUENIL [Concomitant]
     Dosage: UNK
  4. PREDNISONE TAB [Concomitant]
     Dosage: 1 MG, BID
     Route: 048
  5. PREDNISONE TAB [Concomitant]
     Dosage: 1 MG, Q6H
  6. ARAVA [Concomitant]
     Dosage: 20 MG, QD
     Route: 048
     Dates: start: 20010101

REACTIONS (13)
  - HYPERSENSITIVITY [None]
  - PHARYNGEAL DISORDER [None]
  - TONGUE DISCOLOURATION [None]
  - PARAESTHESIA [None]
  - JOINT SWELLING [None]
  - NASAL DISCOMFORT [None]
  - INJECTION SITE SWELLING [None]
  - PRURITUS [None]
  - SWOLLEN TONGUE [None]
  - INJECTION SITE ERYTHEMA [None]
  - DYSGEUSIA [None]
  - RASH MACULAR [None]
  - ARTHRALGIA [None]
